FAERS Safety Report 7517405-2 (Version None)
Quarter: 2011Q2

REPORT INFORMATION
  Report Type: 
  Country: None (occurrence: None)
  Receive Date: 20110601
  Receipt Date: 20110520
  Transmission Date: 20111010
  Serious: Yes (Other)
  Sender: FDA-Public Use
  Company Number: ES-JNJFOC-20110510642

PATIENT
  Sex: Male

DRUGS (1)
  1. CONCERTA [Suspect]
     Indication: ATTENTION DEFICIT/HYPERACTIVITY DISORDER
     Route: 048

REACTIONS (5)
  - TIC [None]
  - REBOUND EFFECT [None]
  - DECREASED APPETITE [None]
  - INCORRECT DOSE ADMINISTERED [None]
  - DRUG INEFFECTIVE [None]
